FAERS Safety Report 7865101-4 (Version None)
Quarter: 2011Q4

REPORT INFORMATION
  Report Type: 
  Country: None (occurrence: None)
  Receive Date: 20111028
  Receipt Date: 20101005
  Transmission Date: 20120403
  Serious: No
  Sender: FDA-Public Use
  Company Number: US-GLAXOSMITHKLINE-A0886501A

PATIENT
  Age: 74 Year
  Sex: Female
  Weight: 70.8 kg

DRUGS (4)
  1. AVALIDE [Concomitant]
  2. BROVANA [Suspect]
     Indication: CHRONIC OBSTRUCTIVE PULMONARY DISEASE
     Dosage: 15MCG TWICE PER DAY
     Route: 055
     Dates: start: 20100810
  3. ADVAIR DISKUS 100/50 [Suspect]
     Indication: PRODUCT USED FOR UNKNOWN INDICATION
     Route: 055
     Dates: start: 20100810
  4. COREG [Concomitant]

REACTIONS (1)
  - COUGH [None]
